FAERS Safety Report 24207943 (Version 2)
Quarter: 2024Q3

REPORT INFORMATION
  Report Type: Spontaneous
  Country: US (occurrence: US)
  Receive Date: 20240814
  Receipt Date: 20240822
  Transmission Date: 20241017
  Serious: No
  Sender: ROCHE
  Company Number: US-ROCHE-10000052084

PATIENT

DRUGS (1)
  1. ESBRIET [Suspect]
     Active Substance: PIRFENIDONE
     Indication: Product used for unknown indication
     Route: 050

REACTIONS (4)
  - Drug intolerance [Unknown]
  - Nausea [Unknown]
  - Muscle spasms [Unknown]
  - Weight decreased [Unknown]
